FAERS Safety Report 10262278 (Version 3)
Quarter: 2014Q4

REPORT INFORMATION
  Report Type: Spontaneous
  Country: US (occurrence: US)
  Receive Date: 20140626
  Receipt Date: 20141203
  Transmission Date: 20150528
  Serious: Yes (Hospitalization)
  Sender: FDA-Public Use
  Company Number: US-ASTRAZENECA-2014SE45129

PATIENT
  Age: 842 Month
  Sex: Female
  Weight: 65.8 kg

DRUGS (5)
  1. SYMBICORT [Suspect]
     Active Substance: BUDESONIDE\FORMOTEROL FUMARATE DIHYDRATE
     Indication: ASTHMA
     Dosage: 160/4.5, TWO PUFFS, TWO TIMES A DAY
     Route: 055
     Dates: start: 201012
  2. SYMBICORT [Suspect]
     Active Substance: BUDESONIDE\FORMOTEROL FUMARATE DIHYDRATE
     Indication: ASTHMA
     Dosage: 2 PUFFS IN THE MORNING AND 1 PUFF IN THEEVENING FOR 10-14 DAYS, ONE PUFF IN THE MORN AND 1 IN EVENIN
     Route: 055
     Dates: start: 201410
  3. PROVENTIL [Concomitant]
     Active Substance: ALBUTEROL
     Indication: EMERGENCY CARE
     Route: 055
     Dates: start: 1984
  4. IPRATROPIUM BROMIDE/ALBUTEROL SULFATE [Concomitant]
     Active Substance: ALBUTEROL SULFATE\IPRATROPIUM BROMIDE
     Indication: DYSPNOEA
     Dosage: 0.5 MG-3MG/3 ML AS REQUIRED
     Route: 055
     Dates: start: 1999
  5. IPRATROPIUM BROMIDE/ALBUTEROL SULFATE [Concomitant]
     Active Substance: ALBUTEROL SULFATE\IPRATROPIUM BROMIDE
     Indication: DYSPNOEA
     Dosage: 0.5 MG
     Route: 055
     Dates: start: 2011

REACTIONS (15)
  - Dry mouth [Unknown]
  - Nasopharyngitis [Unknown]
  - Malaise [Unknown]
  - Insomnia [Recovered/Resolved]
  - Chronic obstructive pulmonary disease [Unknown]
  - Intentional product misuse [Unknown]
  - Fear [Not Recovered/Not Resolved]
  - Pneumonia [Unknown]
  - Oral disorder [Unknown]
  - Pulmonary fibrosis [Unknown]
  - Lung infection [Unknown]
  - Drug dose omission [Unknown]
  - Dyspnoea [Not Recovered/Not Resolved]
  - Gingival disorder [Recovering/Resolving]
  - Dysphonia [Not Recovered/Not Resolved]

NARRATIVE: CASE EVENT DATE: 201101
